FAERS Safety Report 5981128-1 (Version None)
Quarter: 2008Q4

REPORT INFORMATION
  Report Type: 
  Country: None (occurrence: None)
  Receive Date: 20081205
  Receipt Date: 20081127
  Transmission Date: 20090506
  Serious: Yes (Death)
  Sender: FDA-Public Use
  Company Number: GB-BRISTOL-MYERS SQUIBB COMPANY-14406086

PATIENT

DRUGS (3)
  1. METFORMIN HCL [Suspect]
     Indication: GESTATIONAL DIABETES
     Route: 064
  2. ETHANOL [Concomitant]
     Route: 064
  3. COCAINE [Concomitant]
     Route: 064

REACTIONS (1)
  - INTRA-UTERINE DEATH [None]
